FAERS Safety Report 4348037-5 (Version None)
Quarter: 2004Q2

REPORT INFORMATION
  Report Type: 
  Country: None (occurrence: None)
  Receive Date: 20040422
  Receipt Date: 20040419
  Transmission Date: 20050107
  Serious: Yes (Death)
  Sender: FDA-Public Use
  Company Number: TCI2004A01354

PATIENT
  Age: 89 Year
  Sex: Male

DRUGS (3)
  1. LEUPROLIDE ACETATE [Suspect]
     Indication: PROSTATE CANCER
     Dosage: 11.25 MG (11.25 MG, 1 IN 12 WK) SUBCUTANEOUS  AUTUMN/2003
     Route: 058
     Dates: start: 20030101, end: 20040322
  2. LEUPROLIDE ACETATE [Suspect]
     Indication: PROSTATE CANCER
     Dosage: 3.75 MG (3.75 MG, 1 IN 28 D) SUBCUTANEOUS MORE THAN 2 YRS AGO - AUTUMN/2003
     Route: 058
  3. LEVOFLOXACIN [Concomitant]

REACTIONS (2)
  - DYSPNOEA [None]
  - INTERSTITIAL LUNG DISEASE [None]
